FAERS Safety Report 7862916-3 (Version None)
Quarter: 2011Q4

REPORT INFORMATION
  Report Type: 
  Country: None (occurrence: None)
  Receive Date: 20111027
  Receipt Date: 20101119
  Transmission Date: 20120403
  Serious: No
  Sender: FDA-Public Use
  Company Number: US-AMGEN-KDL318437

PATIENT
  Sex: Male

DRUGS (5)
  1. ENBREL [Suspect]
     Indication: PSORIATIC ARTHROPATHY
  2. LEFLUNOMIDE [Concomitant]
     Dosage: 20 MG, QWK
     Route: 048
  3. ENBREL [Suspect]
     Indication: PSORIASIS
  4. ENBREL [Suspect]
     Indication: RHEUMATOID ARTHRITIS
     Dosage: 25 MG, 2 TIMES/WK
     Route: 058
     Dates: start: 20040120
  5. ENBREL [Suspect]
     Indication: OSTEOARTHRITIS

REACTIONS (2)
  - RHEUMATOID ARTHRITIS [None]
  - COUGH [None]
